FAERS Safety Report 24968355 (Version 1)
Quarter: 2025Q1

REPORT INFORMATION
  Report Type: Spontaneous
  Country: US (occurrence: US)
  Receive Date: 20250214
  Receipt Date: 20250214
  Transmission Date: 20250408
  Serious: Yes (Life-Threatening, Hospitalization)
  Sender: DR REDDYS
  Company Number: None

PATIENT
  Age: 64 Year
  Sex: Male

DRUGS (1)
  1. FENTANYL [Suspect]
     Active Substance: FENTANYL
     Indication: Product used for unknown indication

REACTIONS (4)
  - Unresponsive to stimuli [Recovering/Resolving]
  - Cardiac arrest [Recovered/Resolved]
  - Brain injury [Recovering/Resolving]
  - Overdose [Recovering/Resolving]
